FAERS Safety Report 24696645 (Version 3)
Quarter: 2024Q4

REPORT INFORMATION
  Report Type: Report from Study
  Country: MX (occurrence: MX)
  Receive Date: 20241204
  Receipt Date: 20241218
  Transmission Date: 20250115
  Serious: Yes (Other)
  Sender: NOVARTIS
  Company Number: MX-002147023-NVSC2024MX224187

PATIENT
  Sex: Male
  Weight: 68 kg

DRUGS (4)
  1. TASIGNA [Suspect]
     Active Substance: NILOTINIB
     Indication: Chronic myeloid leukaemia
     Dosage: 3 DOSAGE FORM, QD
     Route: 065
     Dates: start: 2023
  2. TASIGNA [Suspect]
     Active Substance: NILOTINIB
     Dosage: 1 DOSAGE FORM, Q8H (EVERY 8 HOURS)
     Route: 048
     Dates: start: 2024, end: 202407
  3. TASIGNA [Suspect]
     Active Substance: NILOTINIB
     Dosage: 1 DOSAGE FORM, Q12H (EVERY 12 HOURS)
     Route: 048
     Dates: start: 202407
  4. TASIGNA [Suspect]
     Active Substance: NILOTINIB
     Dosage: UNK, BID
     Route: 048

REACTIONS (2)
  - Renal disorder [Unknown]
  - Off label use [Unknown]

NARRATIVE: CASE EVENT DATE: 20240101
